FAERS Safety Report 13098348 (Version 2)
Quarter: 2017Q2

REPORT INFORMATION
  Report Type: Spontaneous
  Country: FR (occurrence: FR)
  Receive Date: 20170109
  Receipt Date: 20170420
  Transmission Date: 20170830
  Serious: Yes (Hospitalization)
  Sender: FDA-Public Use
  Company Number: FR-SA-2017SA001528

PATIENT
  Age: 55 Year
  Sex: Female

DRUGS (6)
  1. TAXOTERE [Suspect]
     Active Substance: DOCETAXEL
     Indication: BRONCHIAL CARCINOMA
     Route: 042
     Dates: start: 20161116, end: 20161116
  2. OPDIVO [Suspect]
     Active Substance: NIVOLUMAB
     Indication: BRONCHIAL CARCINOMA
     Dosage: 220 MG EVERY 15 DAYS
     Route: 042
     Dates: start: 20160721, end: 20160721
  3. SOLU-MEDROL [Suspect]
     Active Substance: METHYLPREDNISOLONE SODIUM SUCCINATE
     Indication: BRONCHIAL CARCINOMA
     Route: 042
     Dates: start: 20161116, end: 20161116
  4. ONDANSETRON [Suspect]
     Active Substance: ONDANSETRON
     Indication: BRONCHIAL CARCINOMA
     Dosage: INTRAVENOUS (INFUSION)
     Route: 042
     Dates: start: 20161116, end: 20161116
  5. OPDIVO [Suspect]
     Active Substance: NIVOLUMAB
     Indication: BRONCHIAL CARCINOMA
     Dosage: 220 MG EVERY 15 DAYS
     Route: 042
     Dates: start: 20161028, end: 20161028
  6. POLARAMINE [Suspect]
     Active Substance: DEXCHLORPHENIRAMINE MALEATE
     Indication: BRONCHIAL CARCINOMA
     Route: 042
     Dates: start: 20161116, end: 20161116

REACTIONS (1)
  - Hypofibrinogenaemia [Recovered/Resolved]

NARRATIVE: CASE EVENT DATE: 20161209
